FAERS Safety Report 5046595-9 (Version None)
Quarter: 2006Q2

REPORT INFORMATION
  Report Type: 
  Country: None (occurrence: None)
  Receive Date: 20060630
  Receipt Date: 20060616
  Transmission Date: 20061013
  Serious: Yes (Hospitalization)
  Sender: FDA-Public Use
  Company Number: SGB1-2006-00238

PATIENT
  Age: 32 Year
  Sex: Male
  Weight: 65 kg

DRUGS (4)
  1. FOZNOL 750 MG (LANTHANUM CARBONATE) TABLET [Suspect]
     Dosage: 750 MG, 1X/DAY: QD, ORAL
     Route: 048
     Dates: start: 20060415, end: 20060423
  2. LASIX /00032601/ (FUROSEMIDE) [Concomitant]
  3. ALLOPURINOL [Concomitant]
  4. FEROGRAD (ASCORBIC ACID, FERROUS SULFATE) [Concomitant]

REACTIONS (4)
  - GASTROOESOPHAGEAL REFLUX DISEASE [None]
  - HAEMODIALYSIS [None]
  - PANCREATITIS ACUTE [None]
  - RENAL FUNCTION TEST ABNORMAL [None]
